FAERS Safety Report 4320069-2 (Version None)
Quarter: 2004Q1

REPORT INFORMATION
  Report Type: 
  Country: None (occurrence: None)
  Receive Date: 20040315
  Receipt Date: 20040122
  Transmission Date: 20041129
  Serious: No
  Sender: FDA-Public Use
  Company Number: 2004195490US

PATIENT
  Sex: Female
  Weight: 48.9885 kg

DRUGS (2)
  1. BEXTRA [Suspect]
     Indication: RHEUMATOID ARTHRITIS
     Dosage: 10 MG, QD
     Dates: start: 20030901, end: 20040118
  2. FISH OIL (FISH OIL) [Concomitant]

REACTIONS (5)
  - DIARRHOEA [None]
  - DRUG INEFFECTIVE [None]
  - MASS [None]
  - OEDEMA PERIPHERAL [None]
  - PLEURISY [None]
